FAERS Safety Report 8936945 (Version 1)
Quarter: 2012Q4

REPORT INFORMATION
  Report Type: 
  Country: IT (occurrence: IT)
  Receive Date: 20121130
  Receipt Date: 20121130
  Transmission Date: 20130627
  Serious: Yes (Other)
  Sender: FDA-Public Use
  Company Number: IT-DENTSPLY-2012SCDP003016

PATIENT
  Sex: Female

DRUGS (1)
  1. MEPIVACAINE [Suspect]
     Indication: PRODUCT USED FOR UNKNOWN INDICATION
     Dosage: UNK

REACTIONS (2)
  - Quadriparesis [Recovered/Resolved]
  - Hypokalaemia [Recovered/Resolved]
